FAERS Safety Report 6525043-3 (Version None)
Quarter: 2010Q1

REPORT INFORMATION
  Report Type: 
  Country: None (occurrence: None)
  Receive Date: 20100104
  Receipt Date: 20091218
  Transmission Date: 20100710
  Serious: No
  Sender: FDA-Public Use
  Company Number: US-B.I. PHARMACEUTICALS,INC./RIDGEFIELD-2009-BP-14609BP

PATIENT
  Age: 83 Year
  Sex: Male

DRUGS (5)
  1. FLOMAX [Suspect]
     Indication: PROSTATOMEGALY
     Dosage: 0.4 MG
     Route: 048
     Dates: start: 20091101
  2. TERAZOSIN HCL [Concomitant]
     Indication: PROSTATOMEGALY
     Dosage: 10 MG
  3. ATENOLOL [Concomitant]
     Indication: CARDIAC DISORDER
     Dosage: 50 MG
  4. SIMVASTATIN [Concomitant]
     Indication: BLOOD CHOLESTEROL INCREASED
     Dosage: 40 MG
  5. PREDNISONE [Concomitant]
     Indication: OSTEOARTHRITIS
     Dosage: 5 MG

REACTIONS (2)
  - NOCTURIA [None]
  - URINARY RETENTION [None]
